FAERS Safety Report 5216951-4 (Version None)
Quarter: 2007Q1

REPORT INFORMATION
  Report Type: 
  Country: None (occurrence: None)
  Receive Date: 20070119
  Receipt Date: 20070108
  Transmission Date: 20070707
  Serious: Yes (Hospitalization, Other)
  Sender: FDA-Public Use
  Company Number: GXKR2007NL00582

PATIENT
  Age: 25 Year
  Sex: Female

DRUGS (4)
  1. RIFAMPICIN [Suspect]
     Indication: TUBERCULOSIS OF INTRATHORACIC LYMPH NODES
     Dosage: 600 MG, QD, ORAL
     Route: 048
  2. ISONIAZID [Suspect]
     Indication: TUBERCULOSIS OF INTRATHORACIC LYMPH NODES
     Dosage: 300 MG, QD, ORAL
     Route: 048
  3. PYRAZINAMID (NGX) (PYRAZINAMIDE) [Suspect]
     Indication: TUBERCULOSIS OF INTRATHORACIC LYMPH NODES
     Dosage: 1500 MG, QD, ORAL
     Route: 048
  4. ETHAMBUTOL (NGX)(ETHAMBUTOL) [Suspect]
     Indication: TUBERCULOSIS OF INTRATHORACIC LYMPH NODES
     Dosage: 1200 MG, QD, UNK

REACTIONS (14)
  - ABDOMINAL PAIN UPPER [None]
  - ACUTE HEPATIC FAILURE [None]
  - ANOREXIA [None]
  - CYTOMEGALOVIRUS INFECTION [None]
  - GASTROINTESTINAL DISORDER [None]
  - GRAFT COMPLICATION [None]
  - HEPATIC ENCEPHALOPATHY [None]
  - LIVER TRANSPLANT [None]
  - PORTAL VEIN THROMBOSIS [None]
  - PRURITUS [None]
  - PYREXIA [None]
  - RASH PRURITIC [None]
  - URINE COLOUR ABNORMAL [None]
  - VOMITING [None]
